FAERS Safety Report 6114852-0 (Version None)
Quarter: 2009Q1

REPORT INFORMATION
  Report Type: 
  Country: None (occurrence: None)
  Receive Date: 20090311
  Receipt Date: 20080411
  Transmission Date: 20090719
  Serious: Yes (Other)
  Sender: FDA-Public Use
  Company Number: US200804001900

PATIENT
  Age: 80 Year
  Sex: Female
  Weight: 76.2 kg

DRUGS (2)
  1. GEMZAR [Suspect]
     Indication: NEOPLASM MALIGNANT
     Dosage: 1800 MG, OTHER
     Dates: start: 20080314
  2. CARBOPLATIN [Concomitant]

REACTIONS (2)
  - NEUTROPENIA [None]
  - THROMBOCYTOPENIA [None]
